FAERS Safety Report 18364367 (Version 1)
Quarter: 2020Q4

REPORT INFORMATION
  Report Type: Spontaneous
  Country: US (occurrence: US)
  Receive Date: 20201009
  Receipt Date: 20201009
  Transmission Date: 20210114
  Serious: No
  Sender: FDA-Public Use
  Company Number: US-GLAXOSMITHKLINE-US2020AMR197683

PATIENT
  Age: 50 Year
  Sex: Male

DRUGS (1)
  1. WELLBUTRIN [Suspect]
     Active Substance: BUPROPION HYDROCHLORIDE
     Indication: TOBACCO USER
     Dosage: UNK
     Route: 065

REACTIONS (3)
  - Drug ineffective for unapproved indication [Unknown]
  - Insomnia [Unknown]
  - Product use in unapproved indication [Unknown]
